FAERS Safety Report 5145443-6 (Version None)
Quarter: 2006Q4

REPORT INFORMATION
  Report Type: 
  Country: None (occurrence: None)
  Receive Date: 20061101
  Receipt Date: 20061017
  Transmission Date: 20070319
  Serious: No
  Sender: FDA-Public Use
  Company Number: 36805

PATIENT
  Age: 75 Year
  Sex: Female

DRUGS (6)
  1. TRAVOPROST 0.004% SOLUTION [Suspect]
     Indication: GLAUCOMA
     Dosage: OPHT
     Route: 047
     Dates: start: 20060922, end: 20060922
  2. DIGOKSIN [Concomitant]
  3. FOSINOPRIL SODIUM [Concomitant]
  4. KOPTOPRIL [Concomitant]
  5. PERINDOPRIL ERBUMINE [Concomitant]
  6. BETAXOLOL HYDROCHLORIDE [Concomitant]

REACTIONS (2)
  - BRONCHOSPASM [None]
  - CONVULSION [None]
